FAERS Safety Report 18040017 (Version 2)
Quarter: 2020Q3

REPORT INFORMATION
  Report Type: Spontaneous
  Country: US (occurrence: US)
  Receive Date: 20200717
  Receipt Date: 20200812
  Transmission Date: 20201103
  Serious: No
  Sender: FDA-Public Use
  Company Number: US-BAUSCH-BL-2020-019713

PATIENT
  Age: 60 Year
  Sex: Female
  Weight: 49.03 kg

DRUGS (6)
  1. TIMOLOL. [Suspect]
     Active Substance: TIMOLOL
     Indication: INTRAOCULAR PRESSURE INCREASED
     Dosage: MANUFACTURER: PACIFIC PHARMA
     Route: 065
     Dates: start: 2020
  2. DORZOLAMIDE [Suspect]
     Active Substance: DORZOLAMIDE
     Indication: INTRAOCULAR PRESSURE INCREASED
     Dosage: MANUFACTURER: SANDOZ
     Route: 065
     Dates: start: 2020
  3. AZOPT [Suspect]
     Active Substance: BRINZOLAMIDE
     Indication: INTRAOCULAR PRESSURE INCREASED
     Route: 065
     Dates: end: 2020
  4. TIMOLOL GEL FORMING SOLUTION [Concomitant]
     Active Substance: TIMOLOL
     Dosage: SANDOZ MANUFACTURER, USED AGAIN
     Dates: start: 2020
  5. TIMOLOL MALEATE OPHTHALMIC GEL FORMING SOLUTION [Suspect]
     Active Substance: TIMOLOL MALEATE
     Indication: INTRAOCULAR PRESSURE INCREASED
     Dosage: STARTED COUPLE OF YEARS PRIOR AND DISCONTINUED ABOUT 2 AND A HALF MONTHS PRIOR
     Route: 047
     Dates: start: 2018, end: 2020
  6. TIMOLOL GEL FORMING SOLUTION [Concomitant]
     Active Substance: TIMOLOL
     Indication: INTRAOCULAR PRESSURE INCREASED
     Dosage: FROM SANDOZ, USED RECENTLY

REACTIONS (3)
  - Intraocular pressure increased [Not Recovered/Not Resolved]
  - Product availability issue [Unknown]
  - Therapy interrupted [Unknown]

NARRATIVE: CASE EVENT DATE: 2020
